FAERS Safety Report 5467214-3 (Version None)
Quarter: 2007Q3

REPORT INFORMATION
  Report Type: 
  Country: None (occurrence: None)
  Receive Date: 20070820
  Receipt Date: 20070419
  Transmission Date: 20080115
  Serious: No
  Sender: FDA-Public Use
  Company Number: WAES0704USA04292

PATIENT
  Age: 50 Year
  Sex: Male

DRUGS (8)
  1. JANUVIA [Suspect]
     Indication: TYPE 2 DIABETES MELLITUS
     Dosage: 100 MG/DAILY/PO
     Route: 048
     Dates: start: 20070412
  2. AVAPRO [Concomitant]
  3. LOTREL [Concomitant]
  4. PULMICORT [Concomitant]
  5. TOPROL-XL [Concomitant]
  6. ZYRTEC [Concomitant]
  7. GEMFIBROZIL [Concomitant]
  8. GLIPIZIDE [Concomitant]

REACTIONS (2)
  - DIARRHOEA [None]
  - STOMACH DISCOMFORT [None]
